FAERS Safety Report 7809819-8 (Version None)
Quarter: 2011Q4

REPORT INFORMATION
  Report Type: 
  Country: None (occurrence: None)
  Receive Date: 20111012
  Receipt Date: 20111005
  Transmission Date: 20120403
  Serious: Yes (Death)
  Sender: FDA-Public Use
  Company Number: US-PFIZER INC-2011237980

PATIENT
  Age: 25 Year
  Sex: Male

DRUGS (4)
  1. CARISOPRODOL [Suspect]
  2. ALPRAZOLAM [Suspect]
  3. METHADONE HCL [Suspect]
  4. MEPROBAMATE [Suspect]

REACTIONS (1)
  - MULTIPLE DRUG OVERDOSE ACCIDENTAL [None]
